FAERS Safety Report 9255398 (Version 1)
Quarter: 2013Q2

REPORT INFORMATION
  Report Type: Spontaneous
  Country: US (occurrence: US)
  Receive Date: 20130425
  Receipt Date: 20130425
  Transmission Date: 20140414
  Serious: No
  Sender: FDA-Public Use
  Company Number: US-BRISTOL-MYERS SQUIBB COMPANY-16793531

PATIENT
  Age: 54 Year
  Sex: Female

DRUGS (1)
  1. HYDREA CAPS 500 MG [Suspect]
     Indication: PLATELET COUNT INCREASED
     Dosage: 3 PILLS,
     Dates: start: 2009

REACTIONS (1)
  - Hypersensitivity [Unknown]
